FAERS Safety Report 9170518 (Version 2)
Quarter: 2013Q1

REPORT INFORMATION
  Report Type: Spontaneous
  Country: US (occurrence: None)
  Receive Date: 20130308
  Receipt Date: 20130326
  Transmission Date: 20140127
  Serious: Yes (Hospitalization)
  Sender: FDA-Public Use
  Company Number: JPI-P-030271

PATIENT
  Age: 63 Year
  Sex: Male
  Weight: 65.77 kg

DRUGS (14)
  1. XYREM [Suspect]
     Indication: CATAPLEXY
     Route: 048
     Dates: start: 20050418
  2. FLUXETINE [Concomitant]
  3. ARMODAFINIL [Concomitant]
  4. LEVOTHYROXINE [Concomitant]
  5. TESTOSTERONE [Concomitant]
  6. CALCIUM [Concomitant]
  7. ZOLEDRONIC ACID [Concomitant]
  8. GAMMA GLOBULIN [Concomitant]
  9. ACETYLSALICYLIC ACID [Concomitant]
  10. NEBIVOLOL [Concomitant]
  11. DIAMINO-DIPHENYL SULFONE [Concomitant]
  12. HYDROMORPHONE HYDROCHLORIDE [Concomitant]
  13. AZITHROMYCIN [Concomitant]
  14. ACYCLOVIR [Concomitant]

REACTIONS (3)
  - Pneumonia [None]
  - Drug dose omission [None]
  - Enuresis [None]
